FAERS Safety Report 5342577-8 (Version None)
Quarter: 2007Q2

REPORT INFORMATION
  Report Type: 
  Country: None (occurrence: None)
  Receive Date: 20070416
  Receipt Date: 20070301
  Transmission Date: 20071010
  Serious: No
  Sender: FDA-Public Use
  Company Number: 2007SP000734

PATIENT
  Age: 78 Year
  Sex: Female
  Weight: 68.0396 kg

DRUGS (5)
  1. LUNESTA [Suspect]
     Indication: INSOMNIA
     Dosage: 1 MG; HS; ORAL
     Route: 048
     Dates: start: 20070227
  2. TOPROL-XL [Concomitant]
  3. LOTREL [Concomitant]
  4. ASPIRIN [Concomitant]
  5. NEXIUM [Concomitant]

REACTIONS (1)
  - DYSGEUSIA [None]
